FAERS Safety Report 6596224-8 (Version None)
Quarter: 2010Q1

REPORT INFORMATION
  Report Type: 
  Country: None (occurrence: None)
  Receive Date: 20100223
  Receipt Date: 20100212
  Transmission Date: 20100710
  Serious: Yes (Hospitalization)
  Sender: FDA-Public Use
  Company Number: SG-PFIZER INC-2010018659

PATIENT
  Age: 66 Year
  Sex: Male

DRUGS (6)
  1. BLINDED *NO SUBJECT DRUG [Suspect]
     Indication: CARDIAC FAILURE
  2. BLINDED *PLACEBO [Suspect]
     Indication: CARDIAC FAILURE
  3. BLINDED EPLERENONE [Suspect]
     Indication: CARDIAC FAILURE
  4. CANDESARTAN [Concomitant]
  5. FRUSEMIDE [Concomitant]
  6. CARVEDILOL [Concomitant]

REACTIONS (1)
  - SEPSIS [None]
